FAERS Safety Report 19826544 (Version 1)
Quarter: 2021Q3

REPORT INFORMATION
  Report Type: Spontaneous
  Country: US (occurrence: US)
  Receive Date: 20210914
  Receipt Date: 20210914
  Transmission Date: 20211014
  Serious: Yes (Hospitalization, Other)
  Sender: FDA-Public Use
  Company Number: US-LUPIN PHARMACEUTICALS INC.-2021-17175

PATIENT
  Age: 5 Decade
  Sex: Male

DRUGS (13)
  1. HYDROCODONE [Suspect]
     Active Substance: HYDROCODONE
     Indication: BACK PAIN
     Dosage: 5 MILLIGRAM, TID
     Route: 065
  2. KRATOM [Suspect]
     Active Substance: HERBALS\MITRAGYNINE
     Indication: BACK PAIN
  3. ALPRAZOLAM. [Suspect]
     Active Substance: ALPRAZOLAM
     Indication: DEPRESSION
  4. HYDROCODONE [Suspect]
     Active Substance: HYDROCODONE
     Indication: INTERVERTEBRAL DISC DEGENERATION
     Dosage: 10 MILLIGRAM, QID
     Route: 065
  5. ALPRAZOLAM. [Suspect]
     Active Substance: ALPRAZOLAM
     Indication: ANXIETY
     Dosage: 0.25 MILLIGRAM, TID
     Route: 065
  6. ESCITALOPRAM OXALATE. [Suspect]
     Active Substance: ESCITALOPRAM OXALATE
     Indication: ANXIETY
     Dosage: 20 MILLIGRAM, QD (FOR OVER A HALF)
     Route: 065
  7. ESCITALOPRAM OXALATE. [Suspect]
     Active Substance: ESCITALOPRAM OXALATE
     Indication: DEPRESSION
  8. TRAMADOL. [Suspect]
     Active Substance: TRAMADOL
     Indication: INTERVERTEBRAL DISC DEGENERATION
  9. TRAMADOL. [Suspect]
     Active Substance: TRAMADOL
     Indication: BACK PAIN
     Dosage: UNK
     Route: 065
  10. OXYCODONE [Suspect]
     Active Substance: OXYCODONE
     Indication: INTERVERTEBRAL DISC DEGENERATION
  11. KRATOM [Suspect]
     Active Substance: HERBALS\MITRAGYNINE
     Indication: DRUG WITHDRAWAL SYNDROME
     Dosage: UNK (HE USED THE POWDER FORM OF MITRAGYNA SPECIOSA MIXED WITH TWO HEAPING TEASPOONS IN 16 OUNCES OF
     Route: 048
  12. OXYCODONE [Suspect]
     Active Substance: OXYCODONE
     Indication: BACK PAIN
     Dosage: UNK
     Route: 065
  13. HYDROCODONE BITARTRATE AND ACETAMINOPHEN [Suspect]
     Active Substance: ACETAMINOPHEN\HYDROCODONE BITARTRATE
     Indication: BACK PAIN
     Dosage: UNK (120 TABLETS PER MONTH)
     Route: 065

REACTIONS (9)
  - Drug dependence [Unknown]
  - Intentional product misuse [Unknown]
  - Anxiety [Recovered/Resolved]
  - Drug use disorder [Recovered/Resolved]
  - Depression [Recovered/Resolved]
  - Drug tolerance [Unknown]
  - Drug ineffective [Unknown]
  - Intentional overdose [Unknown]
  - Drug withdrawal syndrome [Unknown]
